FAERS Safety Report 9976473 (Version 1)
Quarter: 2014Q1

REPORT INFORMATION
  Report Type: Report from Study
  Country: US (occurrence: US)
  Receive Date: 20140306
  Receipt Date: 20140306
  Transmission Date: 20141002
  Serious: No
  Sender: FDA-Public Use
  Company Number: US-ABBVIE-13P-163-1166755-00

PATIENT
  Age: 63 Year
  Sex: Female

DRUGS (6)
  1. HUMIRA [Suspect]
     Indication: PSORIASIS
     Dates: start: 201307
  2. PROZAC [Concomitant]
     Indication: ANXIETY
  3. ATIVAN [Concomitant]
     Indication: PANIC ATTACK
  4. VASOTEC [Concomitant]
     Indication: HYPERTENSION
  5. ZYRTEC [Concomitant]
     Indication: HYPERSENSITIVITY
  6. GREEN COFFEE BEAN EXTRACT [Concomitant]
     Indication: UNEVALUABLE EVENT

REACTIONS (6)
  - Myalgia [Not Recovered/Not Resolved]
  - Arthralgia [Not Recovered/Not Resolved]
  - Pain in extremity [Not Recovered/Not Resolved]
  - Bone pain [Not Recovered/Not Resolved]
  - Arthralgia [Not Recovered/Not Resolved]
  - Unevaluable event [Not Recovered/Not Resolved]
